FAERS Safety Report 6478382-9 (Version None)
Quarter: 2009Q4

REPORT INFORMATION
  Report Type: 
  Country: None (occurrence: None)
  Receive Date: 20091207
  Receipt Date: 20091125
  Transmission Date: 20100525
  Serious: Yes (Hospitalization, Other)
  Sender: FDA-Public Use
  Company Number: PHHY2009GB41091

PATIENT
  Sex: Male

DRUGS (3)
  1. CLOZARIL [Suspect]
     Indication: SCHIZOPHRENIA
     Dosage: 400 MG, QD
     Route: 048
     Dates: start: 20020305
  2. DIAZEPAM [Concomitant]
     Dosage: {6MG/DAY PRN
     Route: 048
  3. PAROXETINE [Concomitant]
     Dosage: 40 MG, UNK
     Route: 048

REACTIONS (7)
  - CHOLELITHIASIS [None]
  - EOSINOPHIL COUNT DECREASED [None]
  - LOWER RESPIRATORY TRACT INFECTION [None]
  - NEUTROPHIL COUNT INCREASED [None]
  - PLATELET COUNT DECREASED [None]
  - PROSTATIC DISORDER [None]
  - WHITE BLOOD CELL COUNT INCREASED [None]
